FAERS Safety Report 15350732 (Version 1)
Quarter: 2018Q3

REPORT INFORMATION
  Report Type: Spontaneous
  Country: IR (occurrence: IR)
  Receive Date: 20180905
  Receipt Date: 20180905
  Transmission Date: 20181010
  Serious: Yes (Life-Threatening, Hospitalization, Other)
  Sender: FDA-Public Use
  Company Number: IR-LUPIN PHARMACEUTICALS INC.-2018-06168

PATIENT
  Age: 19 Year
  Sex: Female

DRUGS (1)
  1. IMIPRAMINE [Suspect]
     Active Substance: IMIPRAMINE
     Indication: PRODUCT USED FOR UNKNOWN INDICATION
     Dosage: UNK
     Route: 048

REACTIONS (8)
  - Toxicity to various agents [Unknown]
  - Loss of consciousness [Recovered/Resolved]
  - Hypotension [Unknown]
  - Arrhythmia [Unknown]
  - Lethargy [Unknown]
  - Drop attacks [Unknown]
  - Asthenia [Unknown]
  - Palpitations [Unknown]
